FAERS Safety Report 19120607 (Version 1)
Quarter: 2021Q2

REPORT INFORMATION
  Report Type: Spontaneous
  Country: US (occurrence: US)
  Receive Date: 20210410
  Receipt Date: 20210410
  Transmission Date: 20210717
  Serious: No
  Sender: FDA-Public Use
  Company Number: None

PATIENT
  Age: 68 Year
  Sex: Female
  Weight: 81 kg

DRUGS (4)
  1. LOSARTAN. [Concomitant]
     Active Substance: LOSARTAN
  2. ADVIL [Concomitant]
     Active Substance: IBUPROFEN
  3. LEVOTHYROXINE. [Concomitant]
     Active Substance: LEVOTHYROXINE
  4. DURISAN HAND SANITIZER [Suspect]
     Active Substance: BENZALKONIUM CHLORIDE
     Indication: COVID-19 PROPHYLAXIS
     Dosage: ?          QUANTITY:18.59 OUNCE(S);?
     Route: 061
     Dates: start: 20200801, end: 20210315

REACTIONS (4)
  - Skin burning sensation [None]
  - Skin irritation [None]
  - Pain [None]
  - Inflammation [None]

NARRATIVE: CASE EVENT DATE: 20210301
